FAERS Safety Report 13677646 (Version 1)
Quarter: 2017Q2

REPORT INFORMATION
  Report Type: Spontaneous
  Country: US (occurrence: US)
  Receive Date: 20170622
  Receipt Date: 20170622
  Transmission Date: 20170830
  Serious: Yes (Other)
  Sender: FDA-Public Use
  Company Number: US-PFIZER INC-2017263404

PATIENT
  Age: 60 Year
  Sex: Female

DRUGS (6)
  1. DEXTROSE. [Suspect]
     Active Substance: DEXTROSE
     Dosage: 20 ML, (THROUGH THE INTERNAL JUGULAR CATHETER)
  2. DEXTROSE. [Suspect]
     Active Substance: DEXTROSE
     Dosage: 40 ML, (THROUGH THE INTERNAL JUGULAR CATHETER)
  3. DEXTROSE. [Suspect]
     Active Substance: DEXTROSE
     Dosage: 20 ML (THROUGH PULMONARY ARTERY CATHETER)
  4. EPINEPHRINE. [Concomitant]
     Active Substance: EPINEPHRINE
     Indication: CARDIAC OUTPUT
     Dosage: 2 UG/MINUTE
     Route: 042
  5. EPINEPHRINE. [Concomitant]
     Active Substance: EPINEPHRINE
     Indication: BLOOD PRESSURE MANAGEMENT
  6. DEXTROSE. [Suspect]
     Active Substance: DEXTROSE
     Indication: HYPOGLYCAEMIA
     Dosage: 50 ML, OVER APPROXIMATELY 30 TO 60 SECONDS (THROUGH THE INTERNAL JUGULAR CATHETER)

REACTIONS (1)
  - Hypotension [Unknown]
